FAERS Safety Report 19179254 (Version 1)
Quarter: 2021Q2

REPORT INFORMATION
  Report Type: Spontaneous
  Country: FR (occurrence: FR)
  Receive Date: 20210426
  Receipt Date: 20210426
  Transmission Date: 20210717
  Serious: Yes (Other)
  Sender: FDA-Public Use
  Company Number: FR-LUPIN PHARMACEUTICALS INC.-2021-05545

PATIENT
  Age: 31 Year
  Sex: Male

DRUGS (2)
  1. TRAMADOL. [Suspect]
     Active Substance: TRAMADOL
     Indication: HEADACHE
     Dosage: UNK?4 TO 6 TRAMADOL 200 MG SR
     Route: 065
     Dates: start: 2015
  2. TRAMADOL. [Suspect]
     Active Substance: TRAMADOL
     Dosage: 10 DOSAGE FORM, QD (TRAMADOL 50 MG)
     Route: 065
     Dates: start: 2015

REACTIONS (2)
  - Drug dependence [Unknown]
  - Overdose [Unknown]
